FAERS Safety Report 9350001 (Version 1)
Quarter: 2013Q2

REPORT INFORMATION
  Report Type: Spontaneous
  Country: IT (occurrence: IT)
  Receive Date: 20130614
  Receipt Date: 20130614
  Transmission Date: 20140414
  Serious: Yes (Other)
  Sender: FDA-Public Use
  Company Number: PHHY2013IT046098

PATIENT
  Sex: Female

DRUGS (2)
  1. RASILEZ [Suspect]
     Indication: HYPERTENSION
     Dosage: 300 MG, DAILY
     Route: 048
     Dates: start: 20121201, end: 20121215
  2. CARDIOASPIRIN [Concomitant]
     Dosage: UNK UKN, UNK

REACTIONS (2)
  - Generalised oedema [Recovered/Resolved]
  - Angioedema [Recovered/Resolved]
